FAERS Safety Report 6392163-6 (Version None)
Quarter: 2009Q4

REPORT INFORMATION
  Report Type: 
  Country: None (occurrence: None)
  Receive Date: 20091007
  Receipt Date: 20091006
  Transmission Date: 20100525
  Serious: Yes (Death, Hospitalization)
  Sender: FDA-Public Use
  Company Number: US-TEVA-209703USA

PATIENT
  Sex: Male

DRUGS (22)
  1. CLINDAMYCIN HCL [Suspect]
     Indication: TOXOPLASMOSIS
     Dates: start: 19960508
  2. TRIMETHOPRIM [Suspect]
     Indication: ANTIFUNGAL PROPHYLAXIS
  3. CEFTRIAXONE SODIUM [Suspect]
     Indication: OPPORTUNISTIC INFECTION PROPHYLAXIS
     Dates: start: 19960508
  4. SAQUINAVIR MESILATE [Suspect]
     Indication: HIV INFECTION
     Route: 048
     Dates: start: 19960501
  5. MIDAZOLAM HYDROCHLORIDE [Suspect]
     Indication: AGITATION
     Dates: start: 19960508
  6. AMPICILLIN [Suspect]
     Indication: OPPORTUNISTIC INFECTION PROPHYLAXIS
     Dates: start: 19960508
  7. ZIDOVUDINE [Suspect]
     Indication: ANTIRETROVIRAL THERAPY
  8. LAMIVUDINE [Suspect]
     Indication: ANTIRETROVIRAL THERAPY
  9. SULFADIAZINE [Suspect]
     Indication: DRUG USE FOR UNKNOWN INDICATION
  10. PHENYTOIN [Suspect]
     Indication: DRUG USE FOR UNKNOWN INDICATION
  11. HYDROXYZINE [Suspect]
     Indication: DRUG USE FOR UNKNOWN INDICATION
  12. METHADONE HYDROCHLORIDE [Suspect]
     Indication: DRUG USE FOR UNKNOWN INDICATION
  13. ETHAMBUTOL DIHYDROCHLORIDE [Suspect]
     Indication: OPPORTUNISTIC INFECTION PROPHYLAXIS
  14. FOLIC ACID [Suspect]
     Indication: DRUG USE FOR UNKNOWN INDICATION
  15. PYRIMETHAMINE [Suspect]
     Indication: DRUG USE FOR UNKNOWN INDICATION
  16. LORAZEPAM [Suspect]
     Indication: AGITATION
     Dates: start: 19960508
  17. HALOPERIDOL [Suspect]
     Indication: AGITATION
     Dates: start: 19960508
  18. FAMOTIDINE [Suspect]
     Indication: DRUG USE FOR UNKNOWN INDICATION
     Dates: start: 19960508
  19. ACYCLOVIR [Suspect]
     Indication: ANTIVIRAL PROPHYLAXIS
     Dates: start: 19960508
  20. MANNITOL [Suspect]
     Indication: DRUG USE FOR UNKNOWN INDICATION
     Dates: start: 19960508
  21. MORPHINE [Suspect]
     Indication: DRUG USE FOR UNKNOWN INDICATION
     Dates: start: 19960509
  22. COCAINE [Suspect]
     Indication: DRUG USE FOR UNKNOWN INDICATION

REACTIONS (26)
  - AGITATION [None]
  - AIDS RELATED COMPLICATION [None]
  - ATAXIA [None]
  - BLOOD CREATINE PHOSPHOKINASE INCREASED [None]
  - BLOOD MAGNESIUM DECREASED [None]
  - BLOOD PHOSPHORUS DECREASED [None]
  - BLOOD POTASSIUM DECREASED [None]
  - CONDITION AGGRAVATED [None]
  - CONVULSION [None]
  - CYTOMEGALOVIRUS CHORIORETINITIS [None]
  - DYSKINESIA [None]
  - ELECTROLYTE IMBALANCE [None]
  - EMOTIONAL DISTRESS [None]
  - HEADACHE [None]
  - HYPOTENSION [None]
  - LISTERIOSIS [None]
  - MENTAL STATUS CHANGES [None]
  - MUSCULAR WEAKNESS [None]
  - NO THERAPEUTIC RESPONSE [None]
  - PARAPARESIS [None]
  - PUPILS UNEQUAL [None]
  - REFUSAL OF TREATMENT BY PATIENT [None]
  - TORSADE DE POINTES [None]
  - TREATMENT NONCOMPLIANCE [None]
  - VENTRICULAR ARRHYTHMIA [None]
  - VENTRICULAR EXTRASYSTOLES [None]
